FAERS Safety Report 19091759 (Version 1)
Quarter: 2021Q2

REPORT INFORMATION
  Report Type: Spontaneous
  Country: US (occurrence: US)
  Receive Date: 20210402
  Receipt Date: 20210402
  Transmission Date: 20210717
  Serious: Yes (Other)
  Sender: FDA-Public Use
  Company Number: None

PATIENT
  Age: 67 Year
  Sex: Male
  Weight: 56.25 kg

DRUGS (1)
  1. PROHANCE [Suspect]
     Active Substance: GADOTERIDOL
     Indication: SPINAL OSTEOARTHRITIS
     Dosage: ?          OTHER FREQUENCY:AT TIME OF TEST;?
     Route: 042
     Dates: start: 20210402, end: 20210402

REACTIONS (3)
  - Syncope [None]
  - Malaise [None]
  - Cold sweat [None]

NARRATIVE: CASE EVENT DATE: 20210402
